FAERS Safety Report 20157001 (Version 1)
Quarter: 2021Q4

REPORT INFORMATION
  Report Type: Spontaneous
  Country: JP (occurrence: JP)
  Receive Date: 20211207
  Receipt Date: 20211207
  Transmission Date: 20220303
  Serious: No
  Sender: FDA-Public Use
  Company Number: JP-PFIZER INC-2021247053

PATIENT
  Age: 11 Year
  Sex: Female

DRUGS (2)
  1. GENOTROPIN [Suspect]
     Active Substance: SOMATROPIN
     Dosage: 1.6 MG
     Route: 058
  2. GENOTROPIN [Suspect]
     Active Substance: SOMATROPIN
     Dosage: 1.8 MG
     Route: 058

REACTIONS (4)
  - Device use issue [Unknown]
  - Poor quality device used [Unknown]
  - Device information output issue [Unknown]
  - Device issue [Unknown]
